FAERS Safety Report 7334721-8 (Version None)
Quarter: 2011Q1

REPORT INFORMATION
  Report Type: 
  Country: None (occurrence: None)
  Receive Date: 20110307
  Receipt Date: 20110221
  Transmission Date: 20110831
  Serious: Yes (Hospitalization)
  Sender: FDA-Public Use
  Company Number: PHHY2011JP13486

PATIENT
  Age: 79 Year
  Sex: Male

DRUGS (2)
  1. RASILEZ AMLO [Suspect]
     Indication: HYPERTENSION
     Dosage: 150 MG, UNK
     Route: 048
     Dates: end: 20110206
  2. HANP [Suspect]
     Dosage: 0.2 UG, UNK
     Route: 041
     Dates: start: 20110203, end: 20110208

REACTIONS (5)
  - OLIGURIA [None]
  - RENAL FAILURE ACUTE [None]
  - ANURIA [None]
  - CARDIAC FAILURE [None]
  - BLOOD PRESSURE SYSTOLIC INCREASED [None]
